FAERS Safety Report 19655930 (Version 1)
Quarter: 2021Q3

REPORT INFORMATION
  Report Type: Report from Study
  Country: CN (occurrence: CN)
  Receive Date: 20210804
  Receipt Date: 20210804
  Transmission Date: 20211014
  Serious: Yes (Death, Other)
  Sender: FDA-Public Use
  Company Number: CN-PFIZER INC-202100969614

PATIENT

DRUGS (4)
  1. CYTARABINE. [Suspect]
     Active Substance: CYTARABINE
     Indication: ACUTE MYELOID LEUKAEMIA
     Dosage: 10 MG/M2, CYCLIC; EVERY 12H FOR 7 DAYS (DAY 3 ?9); (HYPODERMIC INJECTION)
  2. DECITABINE. [Suspect]
     Active Substance: DECITABINE
     Indication: ACUTE MYELOID LEUKAEMIA
     Dosage: 15 MG/M2, CYCLIC; OVER 4 H FOR 5 CONSECUTIVE DAYS (DAY 1?5))
     Route: 042
  3. G?CSF [Suspect]
     Active Substance: GRANULOCYTE COLONY-STIMULATING FACTOR NOS
     Dosage: 300 MG, DAILY (FROM DAY 0)
  4. ACLARUBICIN [Suspect]
     Active Substance: ACLARUBICIN
     Indication: ACUTE MYELOID LEUKAEMIA
     Dosage: 10 MG/DAY, CYCLIC; FOR 4 DAYS (DAY 3?6)

REACTIONS (3)
  - Respiratory failure [Fatal]
  - Myelosuppression [Unknown]
  - Pneumonia [Fatal]
